APPROVED DRUG PRODUCT: TYLOX
Active Ingredient: ACETAMINOPHEN; OXYCODONE HYDROCHLORIDE; OXYCODONE TEREPHTHALATE
Strength: 500MG;4.5MG;0.38MG
Dosage Form/Route: CAPSULE;ORAL
Application: A085375 | Product #001
Applicant: ORTHO MCNEIL PHARMACEUTICAL INC
Approved: Approved Prior to Jan 1, 1982 | RLD: No | RS: No | Type: DISCN